FAERS Safety Report 7277249-6 (Version None)
Quarter: 2011Q1

REPORT INFORMATION
  Report Type: 
  Country: None (occurrence: None)
  Receive Date: 20110202
  Receipt Date: 20110202
  Transmission Date: 20110831
  Serious: Yes (Other)
  Sender: FDA-Public Use
  Company Number: None

PATIENT
  Age: 63 Year
  Sex: Female

DRUGS (5)
  1. VITAMIN D [Concomitant]
  2. AMPYRA [Suspect]
     Indication: MULTIPLE SCLEROSIS
     Dosage: AMPYRA 10 MG Q 12 HOURS ORALLY
     Route: 048
     Dates: start: 20100801, end: 20110101
  3. HYDROCODONE BITARTRATE + ACETAMINOPHEN [Concomitant]
  4. AVONEX [Concomitant]
  5. FLUOXETINE [Concomitant]

REACTIONS (1)
  - SKIN DISCOLOURATION [None]
